FAERS Safety Report 7813062-6 (Version None)
Quarter: 2011Q4

REPORT INFORMATION
  Report Type: 
  Country: None (occurrence: None)
  Receive Date: 20111013
  Receipt Date: 20111003
  Transmission Date: 20120403
  Serious: Yes (Hospitalization, Other)
  Sender: FDA-Public Use
  Company Number: PHHY2011BR88665

PATIENT
  Age: 44 Year
  Sex: Female

DRUGS (9)
  1. HYDRALAZINE HCL [Suspect]
     Dosage: 75 MG, TID
  2. ENALAPRIL MALEATE [Suspect]
     Dosage: 20 MG, BID
  3. CLONIDINE [Suspect]
     Dosage: 0.15 MG, TID
  4. SIMVASTATIN [Suspect]
     Dosage: 40 MG, QD
  5. AMLODIPINE [Suspect]
     Dosage: 5 MG, QD
  6. SPIRONOLACTONE [Suspect]
     Dosage: 25 MG, QD
  7. METFORMIN HYDROCHLORIDE [Suspect]
     Dosage: 850 MG, TID
  8. FUROSEMIDE [Suspect]
     Dosage: 40 MG, BID
  9. METOPROLOL TARTRATE [Suspect]
     Dosage: 100 MG, BID

REACTIONS (8)
  - MYOCARDIAL ISCHAEMIA [None]
  - GLYCOSYLATED HAEMOGLOBIN INCREASED [None]
  - BLOOD PRESSURE INCREASED [None]
  - BLOOD TRIGLYCERIDES INCREASED [None]
  - BLOOD GLUCOSE INCREASED [None]
  - BLOOD PRESSURE INADEQUATELY CONTROLLED [None]
  - LEFT VENTRICULAR FAILURE [None]
  - CHEST PAIN [None]
